FAERS Safety Report 10915075 (Version 1)
Quarter: 2015Q1

REPORT INFORMATION
  Report Type: Spontaneous
  Country: IT (occurrence: IT)
  Receive Date: 20150315
  Receipt Date: 20150315
  Transmission Date: 20150721
  Serious: Yes (Hospitalization)
  Sender: FDA-Public Use
  Company Number: IT-ABBVIE-15P-083-1360626-00

PATIENT
  Age: 73 Year
  Sex: Female

DRUGS (2)
  1. SYCREST [Suspect]
     Active Substance: ASENAPINE MALEATE
     Indication: BIPOLAR I DISORDER
     Route: 060
  2. DEPAKIN [Suspect]
     Active Substance: VALPROATE SODIUM
     Indication: PRODUCT USED FOR UNKNOWN INDICATION
     Route: 048

REACTIONS (2)
  - Motor dysfunction [Unknown]
  - Rhabdomyolysis [Unknown]

NARRATIVE: CASE EVENT DATE: 20150304
